FAERS Safety Report 14003665 (Version 2)
Quarter: 2018Q2

REPORT INFORMATION
  Report Type: Spontaneous
  Country: US (occurrence: US)
  Receive Date: 20170922
  Receipt Date: 20180421
  Transmission Date: 20180711
  Serious: Yes (Hospitalization, Other)
  Sender: FDA-Public Use
  Company Number: US-JNJFOC-20170913662

PATIENT
  Age: 75 Year
  Sex: Female

DRUGS (2)
  1. INVOKANA [Suspect]
     Active Substance: CANAGLIFLOZIN
     Indication: DIABETES MELLITUS
     Route: 048
  2. INVOKANA [Suspect]
     Active Substance: CANAGLIFLOZIN
     Indication: DIABETES MELLITUS
     Route: 048
     Dates: start: 20140714, end: 20150810

REACTIONS (3)
  - Acute kidney injury [Recovering/Resolving]
  - Urinary tract infection [Recovered/Resolved]
  - Pyelonephritis [Recovering/Resolving]

NARRATIVE: CASE EVENT DATE: 201406
